FAERS Safety Report 10396004 (Version 4)
Quarter: 2014Q4

REPORT INFORMATION
  Report Type: Spontaneous
  Country: US (occurrence: US)
  Receive Date: 20140820
  Receipt Date: 20141021
  Transmission Date: 20150528
  Serious: Yes (Hospitalization, Other)
  Sender: FDA-Public Use
  Company Number: US-AMGEN-USASP2014063391

PATIENT
  Age: 86 Year
  Sex: Male

DRUGS (1)
  1. PROCRIT [Suspect]
     Active Substance: ERYTHROPOIETIN
     Indication: NEPHROGENIC ANAEMIA
     Dosage: 20000 UNIT, WEEKLY (DOSE RANGES FROM 10,000 TO 20,000 UNIT)
     Route: 058
     Dates: start: 20140304, end: 20140722

REACTIONS (3)
  - Haemoglobin abnormal [Unknown]
  - Therapeutic response decreased [Unknown]
  - Investigation [Unknown]

NARRATIVE: CASE EVENT DATE: 20140721
